FAERS Safety Report 4487659-8 (Version None)
Quarter: 2004Q4

REPORT INFORMATION
  Report Type: 
  Country: None (occurrence: None)
  Receive Date: 20041027
  Receipt Date: 20041027
  Transmission Date: 20050328
  Serious: Yes (Hospitalization)
  Sender: FDA-Public Use
  Company Number: None

PATIENT
  Age: 5 Year
  Sex: Female
  Weight: 13.1 kg

DRUGS (6)
  1. ETOPOSIDE [Suspect]
     Indication: NEUROBLASTOMA
     Dosage: 120 MG/DAY 1 DOSE X 3 DAY INTRAVENOU
     Route: 042
     Dates: start: 20040921, end: 20040923
  2. CISPLATIN [Suspect]
     Dosage: 30 MG/DAY 1 DOSE X 4 DAY INTRAVENOU
     Route: 042
     Dates: start: 20040921, end: 20040924
  3. ONDANSETRON [Concomitant]
  4. NEUPOGEN [Concomitant]
  5. SULFAMETHOXAZOLE + TRIMETHOPRIM [Concomitant]
  6. ATIVAN [Concomitant]

REACTIONS (6)
  - APNOEA [None]
  - POST PROCEDURAL COMPLICATION [None]
  - PROCEDURAL COMPLICATION [None]
  - RESPIRATORY RATE DECREASED [None]
  - SEDATION [None]
  - STRIDOR [None]
